FAERS Safety Report 9891459 (Version 1)
Quarter: 2014Q1

REPORT INFORMATION
  Report Type: Spontaneous
  Country: IN (occurrence: None)
  Receive Date: 20140210
  Receipt Date: 20140210
  Transmission Date: 20141002
  Serious: Yes (Disabling, Other)
  Sender: FDA-Public Use
  Company Number: 2014028615

PATIENT
  Age: 35 Year
  Sex: Male

DRUGS (2)
  1. FRAGMIN [Suspect]
     Indication: ANTICOAGULANT THERAPY
     Route: 058
  2. WARFARIN (WARFARIN) [Suspect]
     Indication: ANTICOAGULANT THERAPY
     Route: 048

REACTIONS (5)
  - Priapism [None]
  - Gangrene [None]
  - International normalised ratio increased [None]
  - Penile vascular disorder [None]
  - Ischaemia [None]
